FAERS Safety Report 5597462-3 (Version None)
Quarter: 2007Q4

REPORT INFORMATION
  Report Type: 
  Country: None (occurrence: None)
  Receive Date: 20071221
  Receipt Date: 20071009
  Transmission Date: 20080405
  Serious: No
  Sender: FDA-Public Use
  Company Number: SPV1-2007-04461

PATIENT
  Age: 5 Year
  Sex: Female
  Weight: 19 kg

DRUGS (1)
  1. VYVANSE [Suspect]
     Indication: ATTENTION DEFICIT/HYPERACTIVITY DISORDER
     Dosage: 30 MG, 1X/DAY:QD,ORAL
     Route: 048
     Dates: start: 20071009

REACTIONS (6)
  - CRYING [None]
  - DEPRESSED MOOD [None]
  - DRUG ADMINISTRATION ERROR [None]
  - LETHARGY [None]
  - OBSESSIVE THOUGHTS [None]
  - OFF LABEL USE [None]
